FAERS Safety Report 11949384 (Version 1)
Quarter: 2016Q1

REPORT INFORMATION
  Report Type: Spontaneous
  Country: BR (occurrence: BR)
  Receive Date: 20160125
  Receipt Date: 20160125
  Transmission Date: 20160526
  Serious: Yes (Other)
  Sender: FDA-Public Use
  Company Number: BR-GLAXOSMITHKLINE-BR2016GSK008594

PATIENT
  Sex: Female

DRUGS (3)
  1. BENLYSTA [Suspect]
     Active Substance: BELIMUMAB
     Indication: SYSTEMIC LUPUS ERYTHEMATOSUS
     Dosage: UNK , FIRST INFUSION
  2. BENLYSTA [Suspect]
     Active Substance: BELIMUMAB
     Dosage: UNK , THIRD INFUSION
  3. BENLYSTA [Suspect]
     Active Substance: BELIMUMAB
     Dosage: UNK , SECOND INFUSION

REACTIONS (10)
  - Head discomfort [Unknown]
  - Nausea [Unknown]
  - Cardiac arrest [Unknown]
  - Chest pain [Unknown]
  - Hospitalisation [Unknown]
  - Malaise [Unknown]
  - Tremor [Unknown]
  - Dizziness [Unknown]
  - Dyspnoea [Unknown]
  - Anxiety [Unknown]
